FAERS Safety Report 13795964 (Version 3)
Quarter: 2018Q4

REPORT INFORMATION
  Report Type: Spontaneous
  Country: US (occurrence: US)
  Receive Date: 20170726
  Receipt Date: 20181102
  Transmission Date: 20190204
  Serious: Yes (Other)
  Sender: FDA-Public Use
  Company Number: US-009507513-1707USA009731

PATIENT
  Sex: Male
  Weight: 72.3 kg

DRUGS (4)
  1. HYDROCORTONE [Suspect]
     Active Substance: HYDROCORTISONE
     Indication: ADRENOGENITAL SYNDROME
     Dosage: ON INCREASED DOSE (STARTED AT AGE OF 9 YEARS)
  2. HYDROCORTONE [Suspect]
     Active Substance: HYDROCORTISONE
     Dosage: 20 MILLIGRAM, BID (EQUIVALENT 25MG/M2/DAY)
  3. HYDROCORTONE [Suspect]
     Active Substance: HYDROCORTISONE
     Dosage: 20 MILLIGRAM IN THE MORNING AND 10 MG IN THE EVENING
  4. HYDROCORTONE [Suspect]
     Active Substance: HYDROCORTISONE
     Dosage: 40 MG IN THE MORNING AND 20 MG IN THE EVENING

REACTIONS (1)
  - Blood growth hormone decreased [Recovered/Resolved]
